FAERS Safety Report 7573132-7 (Version None)
Quarter: 2011Q2

REPORT INFORMATION
  Report Type: 
  Country: None (occurrence: None)
  Receive Date: 20110627
  Receipt Date: 20110620
  Transmission Date: 20111010
  Serious: Yes (Hospitalization, Other)
  Sender: FDA-Public Use
  Company Number: US-PFIZER INC-2010047736

PATIENT
  Sex: Male

DRUGS (2)
  1. LEVAQUIN [Concomitant]
     Dosage: 500 MG, UNK
     Dates: end: 20080522
  2. DILANTIN [Suspect]
     Indication: BRAIN CONTUSION
     Dosage: 100 MG, UNK
     Dates: start: 20080413

REACTIONS (1)
  - STEVENS-JOHNSON SYNDROME [None]
